FAERS Safety Report 8816299 (Version 1)
Quarter: 2012Q4

REPORT INFORMATION
  Report Type: Spontaneous
  Country: US (occurrence: None)
  Receive Date: 20120928
  Receipt Date: 20120928
  Transmission Date: 20130627
  Serious: Yes (Hospitalization)
  Sender: FDA-Public Use
  Company Number: None

PATIENT
  Age: 36 Year
  Sex: Male
  Weight: 94 kg

DRUGS (2)
  1. CLOMIPRAMINE [Suspect]
     Indication: PARANOID TYPE SCHIZOPHRENIA, UNSPECIFIED STATE
     Dosage: 50 MG AM PO
     Route: 048
     Dates: start: 20120806, end: 20120810
  2. CLOMIPRAMINE [Suspect]
     Indication: OBSESSIVE-COMPULSIVE DISORDER
     Dosage: 50 MG AM PO
     Route: 048
     Dates: start: 20120806, end: 20120810

REACTIONS (2)
  - Urinary retention [None]
  - Feeling abnormal [None]
